FAERS Safety Report 5979092-4 (Version None)
Quarter: 2008Q4

REPORT INFORMATION
  Report Type: 
  Country: None (occurrence: None)
  Receive Date: 20081204
  Receipt Date: 20080711
  Transmission Date: 20090506
  Serious: No
  Sender: FDA-Public Use
  Company Number: US-ABBOTT-08P-163-0462775-00

PATIENT
  Sex: Male
  Weight: 113.5 kg

DRUGS (9)
  1. TRICOR [Suspect]
     Indication: BLOOD CHOLESTEROL INCREASED
     Route: 048
     Dates: start: 20050101
  2. TRICOR [Suspect]
     Indication: BLOOD TRIGLYCERIDES INCREASED
  3. METFORMIN HCL [Concomitant]
     Indication: TYPE 2 DIABETES MELLITUS
     Route: 048
     Dates: start: 20070101
  4. MILIARIDE [Concomitant]
     Indication: NEPHROLITHIASIS
     Route: 048
     Dates: start: 19880101
  5. MILIARIDE [Concomitant]
     Indication: PROPHYLAXIS
  6. COLASADOL [Concomitant]
     Indication: NEPHROLITHIASIS
     Route: 048
     Dates: start: 19880101
  7. COLASADOL [Concomitant]
     Indication: PROPHYLAXIS
  8. POTASSIUM CHLORIDE [Concomitant]
     Indication: DRUG USE FOR UNKNOWN INDICATION
     Route: 048
     Dates: start: 19880101
  9. K-LYTE / K-DUR [Concomitant]
     Indication: DRUG USE FOR UNKNOWN INDICATION
     Route: 048
     Dates: start: 19880101

REACTIONS (6)
  - ABDOMINAL PAIN UPPER [None]
  - BLOOD TRIGLYCERIDES INCREASED [None]
  - DIARRHOEA [None]
  - FAECES HARD [None]
  - RECTAL HAEMORRHAGE [None]
  - SCLERITIS [None]
